FAERS Safety Report 9442103 (Version 1)
Quarter: 2013Q3

REPORT INFORMATION
  Report Type: Spontaneous
  Country: US (occurrence: None)
  Receive Date: 20130805
  Receipt Date: 20130805
  Transmission Date: 20140515
  Serious: Yes (Death)
  Sender: FDA-Public Use
  Company Number: None

PATIENT
  Age: 73 Year
  Sex: Female
  Weight: 99.8 kg

DRUGS (1)
  1. PRADAXA [Suspect]
     Indication: ATRIAL FIBRILLATION
     Dosage: DABIGATRAN 150MG BID PO
     Route: 048

REACTIONS (5)
  - Large intestine perforation [None]
  - Hernia obstructive [None]
  - Septic shock [None]
  - Multi-organ failure [None]
  - Shock haemorrhagic [None]
